FAERS Safety Report 4404309-7 (Version None)
Quarter: 2004Q3

REPORT INFORMATION
  Report Type: 
  Country: None (occurrence: None)
  Receive Date: 20040720
  Receipt Date: 20040705
  Transmission Date: 20050211
  Serious: Yes (Disabling)
  Sender: FDA-Public Use
  Company Number: 2004CG00003

PATIENT
  Age: 56 Year
  Sex: Male

DRUGS (2)
  1. XYLOCAINE [Suspect]
     Indication: ANAESTHESIA
     Dosage: 80 MG RNB
     Dates: start: 20020611, end: 20020611
  2. BUPIVACAINE [Suspect]
     Indication: ANAESTHESIA
     Dosage: 20 MG RNB
     Dates: start: 20020611, end: 20020611

REACTIONS (5)
  - ANAESTHETIC COMPLICATION [None]
  - DIPLOPIA [None]
  - MEDICATION ERROR [None]
  - MUSCLE NECROSIS [None]
  - OPHTHALMOPLEGIA [None]
